FAERS Safety Report 4923629-0 (Version None)
Quarter: 2006Q1

REPORT INFORMATION
  Report Type: 
  Country: None (occurrence: None)
  Receive Date: 20060227
  Receipt Date: 20050324
  Transmission Date: 20060701
  Serious: Yes (Hospitalization, Other)
  Sender: FDA-Public Use
  Company Number: US-MERCK-0503USA04624

PATIENT
  Age: 58 Year
  Sex: Male
  Weight: 86 kg

DRUGS (1)
  1. VIOXX [Suspect]
     Indication: INFLAMMATION
     Route: 048
     Dates: start: 19990101, end: 20040930

REACTIONS (5)
  - AMNESIA [None]
  - CARDIAC DISORDER [None]
  - CEREBROVASCULAR ACCIDENT [None]
  - CONFUSIONAL STATE [None]
  - INJURY [None]
